FAERS Safety Report 17586784 (Version 1)
Quarter: 2020Q1

REPORT INFORMATION
  Report Type: Spontaneous
  Country: PL (occurrence: PL)
  Receive Date: 20200326
  Receipt Date: 20200326
  Transmission Date: 20200409
  Serious: Yes (Other)
  Sender: FDA-Public Use
  Company Number: PL-COVIS PHARMA B.V.-2020COV00120

PATIENT
  Age: 55 Year
  Sex: Female

DRUGS (7)
  1. NEBIVOLOL. [Concomitant]
     Active Substance: NEBIVOLOL
     Route: 065
  2. RAMIPRIL. [Concomitant]
     Active Substance: RAMIPRIL
     Route: 065
  3. SOTALOL. [Suspect]
     Active Substance: SOTALOL
     Route: 065
  4. ZIPRASIDONE. [Suspect]
     Active Substance: ZIPRASIDONE
     Route: 065
  5. POTASSIUM SALTS [Concomitant]
     Active Substance: UNSPECIFIED INGREDIENT
     Route: 065
  6. DIGOXIN. [Concomitant]
     Active Substance: DIGOXIN
     Route: 065
  7. INDAPAMIDE. [Concomitant]
     Active Substance: INDAPAMIDE
     Route: 065

REACTIONS (2)
  - Ventricular arrhythmia [Unknown]
  - Drug interaction [Unknown]
